FAERS Safety Report 10399862 (Version 1)
Quarter: 2014Q1

REPORT INFORMATION
  Report Type: Spontaneous
  Country: US (occurrence: None)
  Receive Date: 20130815
  Receipt Date: 20130815
  Transmission Date: 20141002
  Serious: Yes (Hospitalization, Other)
  Sender: FDA-Public Use
  Company Number: ADR-2013-00273

PATIENT
  Age: 17 Year
  Sex: Female

DRUGS (4)
  1. LIORESAL [Suspect]
     Indication: MUSCLE SPASTICITY
     Route: 037
  2. CYPROHEPTIDINE [Concomitant]
  3. ORAL BACLOFEN [Concomitant]
  4. ORAL VALIUM [Concomitant]

REACTIONS (1)
  - Drug withdrawal syndrome [None]
